FAERS Safety Report 23472082 (Version 2)
Quarter: 2024Q3

REPORT INFORMATION
  Report Type: Spontaneous
  Country: RU (occurrence: RU)
  Receive Date: 20240202
  Receipt Date: 20240917
  Transmission Date: 20241016
  Serious: Yes (Other)
  Sender: ORGANON
  Company Number: RU-ORGANON-O2402RUS000208

PATIENT
  Age: 13 Year
  Sex: Male

DRUGS (1)
  1. SINGULAIR [Suspect]
     Active Substance: MONTELUKAST SODIUM
     Dosage: UNK
     Route: 048

REACTIONS (5)
  - Drug-induced liver injury [Recovering/Resolving]
  - Abdominal pain upper [Recovering/Resolving]
  - Transaminases increased [Recovering/Resolving]
  - Hepatomegaly [Recovering/Resolving]
  - Pancreatic enlargement [Recovering/Resolving]

NARRATIVE: CASE EVENT DATE: 20231201
